FAERS Safety Report 17823555 (Version 1)
Quarter: 2020Q2

REPORT INFORMATION
  Report Type: Spontaneous
  Country: US (occurrence: US)
  Receive Date: 20200525
  Receipt Date: 20200525
  Transmission Date: 20200714
  Serious: Yes (Other)
  Sender: FDA-Public Use
  Company Number: None

PATIENT
  Age: 10 Year
  Sex: Male
  Weight: 34.2 kg

DRUGS (1)
  1. MONTELUKAST SOD 5MG TAB CHEW [Suspect]
     Active Substance: MONTELUKAST SODIUM
     Indication: ASTHMA
     Dosage: ?          QUANTITY:1 TABLET(S);?
     Route: 048
     Dates: start: 20200424, end: 20200508

REACTIONS (8)
  - Depersonalisation/derealisation disorder [None]
  - Loss of consciousness [None]
  - Somnambulism [None]
  - Amnesia [None]
  - Headache [None]
  - Anger [None]
  - Abdominal pain upper [None]
  - Behaviour disorder [None]

NARRATIVE: CASE EVENT DATE: 20200508
